FAERS Safety Report 7930373-4 (Version None)
Quarter: 2011Q4

REPORT INFORMATION
  Report Type: 
  Country: None (occurrence: None)
  Receive Date: 20111121
  Receipt Date: 20111107
  Transmission Date: 20120403
  Serious: Yes (Death, Hospitalization)
  Sender: FDA-Public Use
  Company Number: US-ROCHE-1011641

PATIENT
  Sex: Female

DRUGS (5)
  1. HERCEPTIN [Suspect]
     Route: 042
  2. CARBOPLATIN [Suspect]
     Dates: start: 20051028
  3. IXABEPILONE [Suspect]
     Indication: BREAST CANCER METASTATIC
     Dates: start: 20051021
  4. CARBOPLATIN [Suspect]
     Indication: BREAST CANCER METASTATIC
     Dates: start: 20051021
  5. HERCEPTIN [Suspect]
     Indication: BREAST CANCER METASTATIC
     Route: 042
     Dates: start: 20051021

REACTIONS (1)
  - FEBRILE NEUTROPENIA [None]
